FAERS Safety Report 18904097 (Version 6)
Quarter: 2021Q2

REPORT INFORMATION
  Report Type: Spontaneous
  Country: NL (occurrence: NL)
  Receive Date: 20210217
  Receipt Date: 20210622
  Transmission Date: 20210717
  Serious: Yes (Other)
  Sender: FDA-Public Use
  Company Number: NL-REGENERON PHARMACEUTICALS, INC.-2021-21227

PATIENT

DRUGS (2)
  1. EYLEA [Suspect]
     Active Substance: AFLIBERCEPT
     Indication: RETINAL VEIN OCCLUSION
  2. EYLEA [Suspect]
     Active Substance: AFLIBERCEPT
     Indication: CYSTOID MACULAR OEDEMA
     Dosage: 1 DF, ONCE; LAS INJECTION PRIOR TO THE EVENT (TOTAL OF 42 INJECTIONS PRIOR TO THE EVENT)
     Route: 031
     Dates: start: 20201209, end: 20201209

REACTIONS (4)
  - Device use issue [Unknown]
  - Amaurosis fugax [Recovered/Resolved]
  - Intraocular pressure increased [Recovered/Resolved]
  - Amaurosis fugax [Unknown]

NARRATIVE: CASE EVENT DATE: 20201209
